FAERS Safety Report 9892365 (Version 1)
Quarter: 2014Q1

REPORT INFORMATION
  Report Type: Spontaneous
  Country: JP (occurrence: JP)
  Receive Date: 20140212
  Receipt Date: 20140212
  Transmission Date: 20141002
  Serious: Yes (Hospitalization, Other)
  Sender: FDA-Public Use
  Company Number: JP-ACTAVIS-2014-02218

PATIENT
  Age: 34 Year
  Sex: Female

DRUGS (3)
  1. OXALIPLATIN (UNKNOWN) [Suspect]
     Indication: COLON CANCER RECURRENT
     Dosage: UNK
     Route: 065
     Dates: start: 20100925
  2. CAPECITABINE [Concomitant]
     Indication: COLON CANCER RECURRENT
     Dosage: UNK
     Route: 065
     Dates: start: 20100925
  3. BEVACIZUMAB [Concomitant]
     Indication: COLON CANCER RECURRENT
     Dosage: UNK
     Route: 065
     Dates: start: 20100925

REACTIONS (5)
  - Thrombocytopenia [Recovering/Resolving]
  - Thrombotic thrombocytopenic purpura [Recovering/Resolving]
  - Renal impairment [Unknown]
  - Hepatic enzyme increased [Unknown]
  - Arthralgia [Recovered/Resolved]
